FAERS Safety Report 4881817-6 (Version None)
Quarter: 2006Q1

REPORT INFORMATION
  Report Type: 
  Country: None (occurrence: None)
  Receive Date: 20060112
  Receipt Date: 20060112
  Transmission Date: 20060701
  Serious: Yes (Life-Threatening, Hospitalization)
  Sender: FDA-Public Use
  Company Number: None

PATIENT
  Sex: Female

DRUGS (2)
  1. FOSPHENYTOIN SODIUM [Suspect]
     Indication: CONVULSION PROPHYLAXIS
     Dosage: 1 GRAM ONCE IV
     Route: 042
     Dates: start: 20051120, end: 20051124
  2. FOSPHENYTOIN SODIUM [Suspect]
     Dosage: 100 MG Q 8 H IV
     Route: 042

REACTIONS (1)
  - CONVULSION [None]
